FAERS Safety Report 20960369 (Version 1)
Quarter: 2022Q2

REPORT INFORMATION
  Report Type: Spontaneous
  Country: US (occurrence: US)
  Receive Date: 20220615
  Receipt Date: 20220615
  Transmission Date: 20220721
  Serious: No
  Sender: FDA-Public Use
  Company Number: US-STRIDES ARCOLAB LIMITED-2021SP030126

PATIENT
  Age: 52 Year
  Sex: Female

DRUGS (12)
  1. HYDRALAZINE HCL [Suspect]
     Active Substance: HYDRALAZINE HYDROCHLORIDE
     Indication: Diuretic therapy
     Dosage: 10 MILLIGRAM, TID
     Route: 048
  2. HYDRALAZINE HCL [Suspect]
     Active Substance: HYDRALAZINE HYDROCHLORIDE
     Dosage: 20 MILLIGRAM, TID
     Route: 065
  3. FUROSEMIDE [Concomitant]
     Active Substance: FUROSEMIDE
     Indication: Diuretic therapy
     Dosage: UNK
     Route: 042
  4. FUROSEMIDE [Concomitant]
     Active Substance: FUROSEMIDE
     Indication: Hyperkalaemia
     Dosage: 80 MILLIGRAM, BID
     Route: 042
  5. FUROSEMIDE [Concomitant]
     Active Substance: FUROSEMIDE
     Dosage: 20 MILLIGRAM PER HOUR (INFUSION)
     Route: 042
  6. FUROSEMIDE [Concomitant]
     Active Substance: FUROSEMIDE
     Dosage: 80 MILLIGRAM, BID
     Route: 048
  7. MIDODRINE [Concomitant]
     Active Substance: MIDODRINE
     Indication: Hepatorenal syndrome
     Dosage: UNK
     Route: 065
  8. OCTREOTIDE [Concomitant]
     Active Substance: OCTREOTIDE
     Indication: Hepatorenal syndrome
     Dosage: UNK
     Route: 065
  9. INSULIN NOS [Concomitant]
     Active Substance: INSULIN NOS
     Indication: Hyperkalaemia
     Dosage: UNK
     Route: 065
  10. DEXTROSE [Concomitant]
     Active Substance: DEXTROSE
     Indication: Hyperkalaemia
     Dosage: UNK
     Route: 065
  11. CHLOROTHIAZIDE [Concomitant]
     Active Substance: CHLOROTHIAZIDE
     Indication: Diuretic therapy
     Dosage: 250 MILLIGRAM, BID
     Route: 042
  12. CHLOROTHIAZIDE [Concomitant]
     Active Substance: CHLOROTHIAZIDE
     Dosage: 500 MILLIGRAM, BID
     Route: 040

REACTIONS (1)
  - Off label use [Unknown]
